FAERS Safety Report 4366958-4 (Version None)
Quarter: 2004Q2

REPORT INFORMATION
  Report Type: 
  Country: None (occurrence: None)
  Receive Date: 20040527
  Receipt Date: 20040527
  Transmission Date: 20050107
  Serious: Yes (Life-Threatening)
  Sender: FDA-Public Use
  Company Number: None

PATIENT
  Sex: Male
  Weight: 68.9467 kg

DRUGS (21)
  1. ALTACE [Suspect]
     Indication: HYPERTENSION
     Dosage: 5MG QD ORAL
     Route: 048
  2. SEVOFLURANE [Suspect]
     Indication: ANAESTHESIA
  3. PROPOFOL [Concomitant]
  4. ROCURONIUM [Concomitant]
  5. COREG [Concomitant]
  6. DEMADEX [Concomitant]
  7. HYDROCODONE/ACETAMINOPHEN [Concomitant]
  8. VITAMIN E [Concomitant]
  9. VITAMIN B-12 [Concomitant]
  10. GLUCOPHAGE [Concomitant]
  11. AMBIEN [Concomitant]
  12. LORAZEPAM [Concomitant]
  13. ZOCOR [Concomitant]
  14. PREDNISONE [Concomitant]
  15. VITAMIN C [Concomitant]
  16. FOLIC ACID [Concomitant]
  17. COMBIVENT [Concomitant]
  18. REMERON [Concomitant]
  19. AMARYL [Concomitant]
  20. TRAZODONE HCL [Concomitant]
  21. EFFEXOR XR [Concomitant]

REACTIONS (4)
  - DRUG INTERACTION [None]
  - EJECTION FRACTION DECREASED [None]
  - HYPOKINESIA [None]
  - HYPOTENSION [None]
